FAERS Safety Report 4493688-0 (Version None)
Quarter: 2004Q4

REPORT INFORMATION
  Report Type: 
  Country: None (occurrence: None)
  Receive Date: 20041103
  Receipt Date: 20041103
  Transmission Date: 20050328
  Serious: Yes (Hospitalization)
  Sender: FDA-Public Use
  Company Number: None

PATIENT
  Age: 65 Year
  Sex: Male
  Weight: 102 kg

DRUGS (12)
  1. ASPIRIN, BUFFERED 325 MG [Suspect]
     Indication: CARDIAC DISORDER
     Dosage: 325 MG QD ORAL
     Route: 048
     Dates: start: 20040827, end: 20040224
  2. CLOPIDOGREL BISULFATE [Suspect]
     Indication: CORONARY ARTERY DISEASE
     Dosage: 75 MG QD ORAL
     Route: 048
     Dates: start: 20040220, end: 20040224
  3. SIMVASTATIN [Concomitant]
  4. RANITIDINE [Concomitant]
  5. NTG SL [Concomitant]
  6. METOPROLOL [Concomitant]
  7. LORATADINE [Concomitant]
  8. HYDROCHLOROTHIAZIDE [Concomitant]
  9. GLIPIZIDE [Concomitant]
  10. FOSINOPRIL SODIUM [Concomitant]
  11. METFORM [Concomitant]
  12. FLUNISOLIDE NASAL SPRAY [Concomitant]

REACTIONS (6)
  - ANGINA PECTORIS [None]
  - CHEST PAIN [None]
  - DYSPNOEA EXERTIONAL [None]
  - HAEMATOCHEZIA [None]
  - HYPERHIDROSIS [None]
  - SCAN MYOCARDIAL PERFUSION ABNORMAL [None]
